FAERS Safety Report 7235237-X (Version None)
Quarter: 2011Q1

REPORT INFORMATION
  Report Type: 
  Country: None (occurrence: None)
  Receive Date: 20110120
  Receipt Date: 20110111
  Transmission Date: 20110831
  Serious: Yes (Hospitalization)
  Sender: FDA-Public Use
  Company Number: FR-KINGPHARMUSA00001-K201100053

PATIENT
  Age: 89 Year
  Sex: Male

DRUGS (5)
  1. ALTACE [Suspect]
     Indication: HYPERTENSION
     Dosage: UNK
  2. VERAPAMIL HYDROCHLORIDE [Suspect]
     Indication: HYPERTENSION
     Dosage: UNK
  3. PREVISCAN [Suspect]
     Indication: AORTIC VALVE REPLACEMENT
     Dosage: UNK
     Route: 048
     Dates: start: 19920101, end: 20100528
  4. DIAMICRON [Suspect]
     Indication: TYPE 2 DIABETES MELLITUS
     Dosage: UNK
  5. LASIX [Suspect]
     Dosage: UNK
     Dates: end: 20100528

REACTIONS (5)
  - COLONIC POLYP [None]
  - WEIGHT DECREASED [None]
  - DIVERTICULUM INTESTINAL [None]
  - RENAL IMPAIRMENT [None]
  - RECTAL HAEMORRHAGE [None]
